FAERS Safety Report 12356652 (Version 2)
Quarter: 2016Q2

REPORT INFORMATION
  Report Type: Spontaneous
  Country: US (occurrence: US)
  Receive Date: 20160511
  Receipt Date: 20160511
  Transmission Date: 20160815
  Serious: Yes (Death, Hospitalization, Other)
  Sender: FDA-Public Use
  Company Number: US-APOTEX-2016AP008337

PATIENT
  Age: 58 Year
  Sex: Female

DRUGS (9)
  1. RITUXIMAB [Suspect]
     Active Substance: RITUXIMAB
     Dosage: 375 MG/M2, SINGLE
     Route: 042
     Dates: start: 20130906
  2. MYCOPHENOLATE MOFETIL. [Suspect]
     Active Substance: MYCOPHENOLATE MOFETIL
     Indication: MYASTHENIA GRAVIS
     Dosage: 1500 MG, BID
     Route: 065
     Dates: start: 20080704, end: 200908
  3. AZATHIOPRINE. [Suspect]
     Active Substance: AZATHIOPRINE
     Indication: MYASTHENIA GRAVIS
     Dosage: 3.63 MG/KG, UNKNOWN
     Route: 065
     Dates: start: 200908, end: 20110716
  4. RITUXIMAB [Suspect]
     Active Substance: RITUXIMAB
     Dosage: 375 MG/M2, SINGLE
     Route: 042
     Dates: start: 20130809
  5. PREDNISONE. [Suspect]
     Active Substance: PREDNISONE
     Indication: MYASTHENIA GRAVIS
     Dosage: 40 MG, QD
     Route: 065
  6. IMMUNOGLOBULIN I.V [Suspect]
     Active Substance: HUMAN IMMUNOGLOBULIN G
     Indication: PLASMAPHERESIS
     Dosage: UNK, UNKNOWN
     Route: 042
  7. RITUXIMAB [Suspect]
     Active Substance: RITUXIMAB
     Indication: MYASTHENIA GRAVIS
     Dosage: 375 MG/M2, SINGLE
     Route: 042
     Dates: start: 20130714
  8. RITUXIMAB [Suspect]
     Active Substance: RITUXIMAB
     Dosage: 375 MG/M2, SINGLE
     Route: 042
     Dates: start: 20130712
  9. PYRIDOSTIGMINE [Concomitant]
     Active Substance: PYRIDOSTIGMINE
     Indication: MYASTHENIA GRAVIS
     Dosage: UNK, UNKNOWN
     Route: 065

REACTIONS (2)
  - Progressive multifocal leukoencephalopathy [Fatal]
  - Lymphopenia [Fatal]

NARRATIVE: CASE EVENT DATE: 20140924
